FAERS Safety Report 14661843 (Version 1)
Quarter: 2018Q1

REPORT INFORMATION
  Report Type: Spontaneous
  Country: US (occurrence: US)
  Receive Date: 20180318
  Receipt Date: 20180318
  Transmission Date: 20180509
  Serious: Yes (Hospitalization)
  Sender: FDA-Public Use
  Company Number: None

PATIENT
  Age: 5 Year
  Sex: Male
  Weight: 14.8 kg

DRUGS (5)
  1. VINCRISTINE SULFATE. [Suspect]
     Active Substance: VINCRISTINE SULFATE
     Dates: end: 20180302
  2. CYTARABINE. [Suspect]
     Active Substance: CYTARABINE
     Dates: end: 20180216
  3. ONCASPAR [Suspect]
     Active Substance: PEGASPARGASE
     Dates: end: 20180219
  4. METHOTREXATE. [Suspect]
     Active Substance: METHOTREXATE
     Route: 037
     Dates: end: 20180223
  5. DEXAMETHASONE. [Suspect]
     Active Substance: DEXAMETHASONE
     Dates: end: 20180315

REACTIONS (11)
  - Hypotension [None]
  - Coagulopathy [None]
  - Neutropenia [None]
  - Dialysis [None]
  - Depressed level of consciousness [None]
  - Pyrexia [None]
  - Pseudomonas infection [None]
  - Respiratory failure [None]
  - Haemoglobinuria [None]
  - Liver injury [None]
  - Liver function test abnormal [None]

NARRATIVE: CASE EVENT DATE: 20180307
